FAERS Safety Report 7602301-2 (Version None)
Quarter: 2011Q3

REPORT INFORMATION
  Report Type: 
  Country: None (occurrence: None)
  Receive Date: 20110711
  Receipt Date: 20110627
  Transmission Date: 20111222
  Serious: Yes (Congenital Anomaly)
  Sender: FDA-Public Use
  Company Number: US-MYLANLABS-2011S1013656

PATIENT
  Sex: Male

DRUGS (1)
  1. SPIRONOLACTONE [Suspect]
     Indication: POLYCYSTIC OVARIES
     Route: 064

REACTIONS (2)
  - GENITALIA EXTERNAL AMBIGUOUS [None]
  - MATERNAL EXPOSURE DURING PREGNANCY [None]
